FAERS Safety Report 7216250-5 (Version None)
Quarter: 2011Q1

REPORT INFORMATION
  Report Type: 
  Country: None (occurrence: None)
  Receive Date: 20110107
  Receipt Date: 20101231
  Transmission Date: 20110831
  Serious: Yes (Death, Other)
  Sender: FDA-Public Use
  Company Number: US-PFIZER INC-2011000391

PATIENT
  Age: 67 Year
  Sex: Female

DRUGS (3)
  1. ACETAMINOPHEN AND HYDROCODONE BITARTRATE [Suspect]
     Route: 048
  2. ALPRAZOLAM [Suspect]
     Route: 048
  3. CARISOPRODOL [Suspect]
     Route: 048

REACTIONS (3)
  - DRUG ABUSE [None]
  - CARDIAC ARREST [None]
  - RESPIRATORY ARREST [None]
